FAERS Safety Report 8201289-3 (Version None)
Quarter: 2012Q1

REPORT INFORMATION
  Report Type: 
  Country: None (occurrence: None)
  Receive Date: 20120312
  Receipt Date: 20120308
  Transmission Date: 20120608
  Serious: Yes (Death)
  Sender: FDA-Public Use
  Company Number: PHHY2012TH018010

PATIENT
  Sex: Male
  Weight: 66 kg

DRUGS (1)
  1. INDACATEROL [Suspect]
     Indication: CHRONIC OBSTRUCTIVE PULMONARY DISEASE
     Dosage: 150 UG, UNK
     Dates: start: 20120208

REACTIONS (4)
  - DYSPNOEA [None]
  - COUGH [None]
  - CIRCULATORY COLLAPSE [None]
  - SUDDEN DEATH [None]
